FAERS Safety Report 14025454 (Version 1)
Quarter: 2017Q3

REPORT INFORMATION
  Report Type: Spontaneous
  Country: US (occurrence: US)
  Receive Date: 20170929
  Receipt Date: 20170929
  Transmission Date: 20171128
  Serious: No
  Sender: FDA-Public Use
  Company Number: US-ASTRAZENECA-2017SE99142

PATIENT
  Sex: Male
  Weight: 95.3 kg

DRUGS (4)
  1. SYMBICORT [Suspect]
     Active Substance: BUDESONIDE\FORMOTEROL FUMARATE DIHYDRATE
     Indication: CHEST DISCOMFORT
     Dosage: 160/4.5 MCG, ONE INHALATIONS DAILY
     Route: 055
     Dates: start: 2016
  2. SYMBICORT [Suspect]
     Active Substance: BUDESONIDE\FORMOTEROL FUMARATE DIHYDRATE
     Indication: DYSPNOEA
     Dosage: 160/4.5 MCG, ONE INHALATIONS DAILY
     Route: 055
     Dates: start: 2016
  3. NYSTATIN. [Concomitant]
     Active Substance: NYSTATIN
     Indication: ORAL FUNGAL INFECTION
     Dosage: 5.0ML UNKNOWN
     Dates: start: 2016
  4. SYMBICORT [Suspect]
     Active Substance: BUDESONIDE\FORMOTEROL FUMARATE DIHYDRATE
     Indication: ASTHMA
     Dosage: 160/4.5 MCG, ONE INHALATIONS DAILY
     Route: 055
     Dates: start: 2016

REACTIONS (4)
  - Dysphonia [Unknown]
  - Intentional product misuse [Unknown]
  - Oropharyngitis fungal [Unknown]
  - Off label use [Unknown]

NARRATIVE: CASE EVENT DATE: 2016
